FAERS Safety Report 5845436-7 (Version None)
Quarter: 2008Q3

REPORT INFORMATION
  Report Type: 
  Country: None (occurrence: None)
  Receive Date: 20080814
  Receipt Date: 20080812
  Transmission Date: 20090109
  Serious: Yes (Hospitalization, Other)
  Sender: FDA-Public Use
  Company Number: US-BRISTOL-MYERS SQUIBB COMPANY-14297881

PATIENT
  Age: 59 Year
  Sex: Male
  Weight: 118 kg

DRUGS (1)
  1. DASATINIB [Suspect]
     Indication: MALIGNANT FIBROUS HISTIOCYTOMA
     Dosage: 50MG BID: 5M04240  20MG BID: 6A18119
     Dates: start: 20080620

REACTIONS (2)
  - COLLAPSE OF LUNG [None]
  - PLEURAL EFFUSION [None]
